FAERS Safety Report 18806247 (Version 3)
Quarter: 2021Q2

REPORT INFORMATION
  Report Type: Spontaneous
  Country: US (occurrence: US)
  Receive Date: 20210128
  Receipt Date: 20210514
  Transmission Date: 20210717
  Serious: Yes (Other)
  Sender: FDA-Public Use
  Company Number: US-GILEAD-2021-0513427

PATIENT
  Sex: Male
  Weight: 123.37 kg

DRUGS (12)
  1. HYDROCHLOROTHIAZIDE. [Concomitant]
     Active Substance: HYDROCHLOROTHIAZIDE
  2. LATANOPROST. [Concomitant]
     Active Substance: LATANOPROST
  3. ISENTRESS [Concomitant]
     Active Substance: RALTEGRAVIR POTASSIUM
  4. ROSUVASTATIN. [Concomitant]
     Active Substance: ROSUVASTATIN
  5. TRAZODONE [Concomitant]
     Active Substance: TRAZODONE HYDROCHLORIDE
  6. TRUVADA [Suspect]
     Active Substance: EMTRICITABINE\TENOFOVIR DISOPROXIL FUMARATE
     Indication: HIV INFECTION
     Dosage: UNK
     Route: 048
     Dates: start: 2008, end: 2017
  7. TIVICAY [Concomitant]
     Active Substance: DOLUTEGRAVIR SODIUM
  8. DESCOVY [Concomitant]
     Active Substance: EMTRICITABINE\TENOFOVIR ALAFENAMIDE FUMARATE
  9. TRUVADA [Suspect]
     Active Substance: EMTRICITABINE\TENOFOVIR DISOPROXIL FUMARATE
     Dosage: UNK
     Route: 048
     Dates: start: 2008, end: 2018
  10. DONEPEZIL. [Concomitant]
     Active Substance: DONEPEZIL
  11. SYMBICORT [Concomitant]
     Active Substance: BUDESONIDE\FORMOTEROL FUMARATE DIHYDRATE
  12. ERGOCALCIFEROL. [Concomitant]
     Active Substance: ERGOCALCIFEROL

REACTIONS (7)
  - Osteopenia [Not Recovered/Not Resolved]
  - Anhedonia [Not Recovered/Not Resolved]
  - Renal impairment [Unknown]
  - Emotional distress [Not Recovered/Not Resolved]
  - Anxiety [Not Recovered/Not Resolved]
  - Pain [Not Recovered/Not Resolved]
  - Chronic kidney disease [Not Recovered/Not Resolved]

NARRATIVE: CASE EVENT DATE: 2013
